FAERS Safety Report 19153088 (Version 3)
Quarter: 2022Q1

REPORT INFORMATION
  Report Type: Spontaneous
  Country: US (occurrence: US)
  Receive Date: 20210419
  Receipt Date: 20220308
  Transmission Date: 20220423
  Serious: Yes (Hospitalization, Other)
  Sender: FDA-Public Use
  Company Number: US-MLMSERVICE-20210405-2820038-1

PATIENT
  Age: 52 Year
  Sex: Female
  Weight: 98 kg

DRUGS (2)
  1. OXALIPLATIN [Suspect]
     Active Substance: OXALIPLATIN
     Indication: Colon cancer metastatic
     Dosage: 130 MG/M2, ON DAY 1, EVERY 21 DAYS
     Route: 041
     Dates: start: 20190925, end: 20200212
  2. CAPECITABINE [Concomitant]
     Active Substance: CAPECITABINE
     Indication: Colon cancer metastatic
     Dosage: 1000 MG/M2, ON DAYS 1-14, EVERY 21 DAYS (TWICE DAILY )
     Route: 048
     Dates: start: 2019

REACTIONS (12)
  - Cold dysaesthesia [Recovered/Resolved]
  - Grip strength decreased [Recovered/Resolved]
  - Temperature intolerance [Recovered/Resolved]
  - Tremor [Recovered/Resolved]
  - Dysarthria [Recovered/Resolved]
  - Hypertonia [Recovered/Resolved]
  - Paraesthesia [Recovered/Resolved]
  - Hypokinesia [Recovered/Resolved]
  - Hyporeflexia [Recovered/Resolved]
  - Vision blurred [Recovered/Resolved]
  - Neurotoxicity [Recovered/Resolved]
  - Off label use [Unknown]

NARRATIVE: CASE EVENT DATE: 20190101
